FAERS Safety Report 5033454-0 (Version None)
Quarter: 2006Q2

REPORT INFORMATION
  Report Type: 
  Country: None (occurrence: None)
  Receive Date: 20060621
  Receipt Date: 20060609
  Transmission Date: 20061013
  Serious: No
  Sender: FDA-Public Use
  Company Number: USA-2006-0024409

PATIENT
  Sex: Female

DRUGS (1)
  1. OXYCODONE HCL [Suspect]
     Dosage: UNK
     Route: 065

REACTIONS (2)
  - INCORRECT DOSE ADMINISTERED [None]
  - UNEVALUABLE EVENT [None]
